FAERS Safety Report 10177566 (Version 3)
Quarter: 2014Q2

REPORT INFORMATION
  Report Type: Spontaneous
  Country: FR (occurrence: FR)
  Receive Date: 20140516
  Receipt Date: 20140528
  Transmission Date: 20141212
  Serious: Yes (Other)
  Sender: FDA-Public Use
  Company Number: FR-GILEAD-2014-0100601

PATIENT
  Age: 48 Year
  Sex: Male
  Weight: 80 kg

DRUGS (3)
  1. SOVALDI [Suspect]
     Indication: HEPATITIS C
     Dosage: 400 MG, QD
     Route: 048
     Dates: start: 20140313
  2. VIRAFERON PEG [Suspect]
     Indication: HEPATITIS C
     Dosage: UNK
     Route: 058
     Dates: start: 20140313
  3. RIBAVIRINE [Concomitant]
     Indication: HEPATITIS C
     Dosage: 1600 MG, QD
     Route: 048
     Dates: start: 20140313

REACTIONS (1)
  - Ejaculation disorder [Not Recovered/Not Resolved]
